FAERS Safety Report 8623943-1 (Version None)
Quarter: 2012Q3

REPORT INFORMATION
  Report Type: 
  Country: None (occurrence: None)
  Receive Date: 20120827
  Receipt Date: 20120824
  Transmission Date: 20120928
  Serious: Yes (Other)
  Sender: FDA-Public Use
  Company Number: PHHY2012AU073378

PATIENT
  Sex: Female

DRUGS (2)
  1. ZOLEDRONOC ACID [Suspect]
     Dosage: 5 MG
     Route: 042
     Dates: start: 20110826
  2. ZOLEDRONOC ACID [Suspect]
     Dosage: 5 MG
     Route: 042
     Dates: start: 20120824

REACTIONS (5)
  - PYREXIA [None]
  - NEOPLASM MALIGNANT [None]
  - INFLUENZA LIKE ILLNESS [None]
  - FAECAL INCONTINENCE [None]
  - HEADACHE [None]
